FAERS Safety Report 10899567 (Version 4)
Quarter: 2015Q2

REPORT INFORMATION
  Report Type: Report from Study
  Country: US (occurrence: US)
  Receive Date: 20150309
  Receipt Date: 20150514
  Transmission Date: 20150821
  Serious: Yes (Death, Hospitalization, Other)
  Sender: FDA-Public Use
  Company Number: US-ACTELION-A-NJ2015-114317

PATIENT
  Age: 86 Year
  Sex: Female

DRUGS (2)
  1. VENTAVIS [Suspect]
     Active Substance: ILOPROST
     Indication: PULMONARY ARTERIAL HYPERTENSION
     Dosage: 5 MCG, 4-9X DAILY
     Route: 055
     Dates: start: 20110810, end: 20150415
  2. REVATIO [Concomitant]
     Active Substance: SILDENAFIL CITRATE

REACTIONS (10)
  - Death [Fatal]
  - Venous occlusion [Recovering/Resolving]
  - Fatigue [Unknown]
  - Activities of daily living impaired [Unknown]
  - Foot operation [Unknown]
  - Sepsis [Not Recovered/Not Resolved]
  - Leukaemia [Unknown]
  - Skin ulcer [Not Recovered/Not Resolved]
  - Abasia [Unknown]
  - Somnolence [Unknown]

NARRATIVE: CASE EVENT DATE: 20150501
